FAERS Safety Report 14641980 (Version 3)
Quarter: 2018Q2

REPORT INFORMATION
  Report Type: Spontaneous
  Country: US (occurrence: US)
  Receive Date: 20180315
  Receipt Date: 20180613
  Transmission Date: 20180711
  Serious: Yes (Disabling, Other)
  Sender: FDA-Public Use
  Company Number: US-REGENERON PHARMACEUTICALS, INC.-2018-11525

PATIENT

DRUGS (2)
  1. EYLEA [Suspect]
     Active Substance: AFLIBERCEPT
     Dosage: 2 MG / 0.05 ML, LAST DOSE
     Route: 031
     Dates: start: 20180110, end: 20180110
  2. EYLEA [Suspect]
     Active Substance: AFLIBERCEPT
     Indication: NEOVASCULAR AGE-RELATED MACULAR DEGENERATION
     Dosage: 2 MG / 0.05 ML, EVERY 1-2 MONTHS
     Route: 031

REACTIONS (4)
  - Blindness transient [Recovered/Resolved]
  - Hypotony of eye [Recovered/Resolved]
  - Headache [Recovered/Resolved]
  - Endophthalmitis [Recovered/Resolved]

NARRATIVE: CASE EVENT DATE: 20180111
